FAERS Safety Report 7776154-6 (Version None)
Quarter: 2011Q3

REPORT INFORMATION
  Report Type: 
  Country: None (occurrence: None)
  Receive Date: 20110926
  Receipt Date: 20110914
  Transmission Date: 20111222
  Serious: Yes (Hospitalization)
  Sender: FDA-Public Use
  Company Number: IE-AMGEN-IRLSP2011047121

PATIENT
  Age: 80 Year
  Sex: Female

DRUGS (16)
  1. VENTOLIN HFA [Concomitant]
  2. ZOLPIDEM TARTRATE [Concomitant]
  3. ISTIN [Concomitant]
  4. NASEPTIN [Concomitant]
  5. DIOVAN HCT [Concomitant]
  6. CALCIUM CARBONATE [Concomitant]
  7. PLAVIX [Concomitant]
  8. ZOCOR [Concomitant]
  9. RANITIC [Concomitant]
  10. SPIRIVA [Concomitant]
  11. SINGULAIR [Concomitant]
  12. BONIVA [Concomitant]
  13. ARTELAC [Concomitant]
  14. LANOXIN [Concomitant]
  15. ARANESP [Suspect]
     Indication: PRODUCT USED FOR UNKNOWN INDICATION
     Dosage: 100 MUG, 6 TIMES/WK
     Route: 058
     Dates: start: 20080508
  16. SERETIDE [Concomitant]

REACTIONS (1)
  - CHEST DISCOMFORT [None]
